FAERS Safety Report 8190012-7 (Version None)
Quarter: 2012Q1

REPORT INFORMATION
  Report Type: 
  Country: None (occurrence: None)
  Receive Date: 20120307
  Receipt Date: 20120302
  Transmission Date: 20120608
  Serious: Yes (Hospitalization)
  Sender: FDA-Public Use
  Company Number: FR-B.I. PHARMACEUTICALS,INC./RIDGEFIELD-2012-FF-00164FF

PATIENT
  Sex: Female
  Weight: 50 kg

DRUGS (1)
  1. PRAMIPEXOLE DIHYDROCHLORIDE [Suspect]
     Indication: RESTLESS LEGS SYNDROME
     Dosage: 1.05 MG
     Route: 048
     Dates: start: 20111216

REACTIONS (5)
  - DELIRIUM [None]
  - CONFUSIONAL STATE [None]
  - ASTHENIA [None]
  - VOMITING [None]
  - DRUG DISPENSING ERROR [None]
